FAERS Safety Report 6248527-4 (Version None)
Quarter: 2009Q2

REPORT INFORMATION
  Report Type: 
  Country: None (occurrence: None)
  Receive Date: 20090629
  Receipt Date: 20090618
  Transmission Date: 20091009
  Serious: Yes (Death)
  Sender: FDA-Public Use
  Company Number: KR-JNJFOC-20090607322

PATIENT
  Age: 31 Year
  Sex: Male

DRUGS (2)
  1. TYLENOL-500 [Suspect]
     Route: 048
  2. TYLENOL-500 [Suspect]
     Indication: HEADACHE
     Route: 048

REACTIONS (1)
  - CEREBRAL HAEMORRHAGE [None]
